FAERS Safety Report 21184651 (Version 2)
Quarter: 2022Q3

REPORT INFORMATION
  Report Type: Report from Study
  Country: US (occurrence: US)
  Receive Date: 20220808
  Receipt Date: 20220916
  Transmission Date: 20221026
  Serious: Yes (Other)
  Sender: FDA-Public Use
  Company Number: US-TEVA-2022-US-2062025

PATIENT
  Age: 42 Year
  Sex: Female

DRUGS (3)
  1. CLARAVIS [Suspect]
     Active Substance: ISOTRETINOIN
     Indication: Product used for unknown indication
     Dosage: FORM STRENGTH AND UNIT DOSE: 20 MG
  2. CLARAVIS [Suspect]
     Active Substance: ISOTRETINOIN
     Dosage: FORM STRENGTH AND UNIT DOSE: 30 MG
  3. CLARAVIS [Suspect]
     Active Substance: ISOTRETINOIN
     Dosage: FORM STRENGTH AND UNIT DOSE: 40 MG
     Dates: start: 20220322

REACTIONS (2)
  - Unintended pregnancy [Unknown]
  - Ectopic pregnancy termination [Unknown]

NARRATIVE: CASE EVENT DATE: 20220101
